FAERS Safety Report 17984665 (Version 3)
Quarter: 2020Q3

REPORT INFORMATION
  Report Type: Spontaneous
  Country: GR (occurrence: GR)
  Receive Date: 20200706
  Receipt Date: 20200810
  Transmission Date: 20201103
  Serious: Yes (Other)
  Sender: FDA-Public Use
  Company Number: GR-JNJFOC-20200641461

PATIENT
  Age: 79 Year
  Sex: Female
  Weight: 64 kg

DRUGS (6)
  1. RIVAROXABAN [Suspect]
     Active Substance: RIVAROXABAN
     Route: 048
     Dates: start: 2020
  2. RIVAROXABAN [Suspect]
     Active Substance: RIVAROXABAN
     Route: 048
     Dates: start: 202005, end: 202006
  3. LEVOTHYROXINE;LIOTHYRONINE [Concomitant]
     Indication: AUTOIMMUNE THYROIDITIS
     Dosage: 75 MG, QD
  4. SEVIKAR [Concomitant]
     Active Substance: AMLODIPINE BESYLATE\OLMESARTAN MEDOXOMIL
     Dosage: 20.5 MG, OM
  5. RIVAROXABAN [Suspect]
     Active Substance: RIVAROXABAN
     Indication: ARRHYTHMIA
     Dosage: 10 MG
     Route: 048
     Dates: start: 2019, end: 202005
  6. FLECARYTHM [Concomitant]
     Active Substance: FLECAINIDE ACETATE
     Dosage: 50 MG, BID

REACTIONS (6)
  - Fall [Recovered/Resolved]
  - Paroxysmal arrhythmia [Recovered/Resolved]
  - Asthenia [Not Recovered/Not Resolved]
  - Haematoma [Recovering/Resolving]
  - Contusion [Recovering/Resolving]
  - Fatigue [Not Recovered/Not Resolved]

NARRATIVE: CASE EVENT DATE: 2020
